FAERS Safety Report 10220576 (Version 1)
Quarter: 2014Q2

REPORT INFORMATION
  Report Type: Spontaneous
  Country: CA (occurrence: CA)
  Receive Date: 20140606
  Receipt Date: 20140606
  Transmission Date: 20141212
  Serious: Yes (Death)
  Sender: FDA-Public Use
  Company Number: CA-AMGEN-CANSP2014041569

PATIENT
  Age: 69 Year
  Sex: Male

DRUGS (1)
  1. NEUPOGEN [Suspect]
     Indication: RECTAL ADENOCARCINOMA
     Dosage: 1.6ML/480MCG, UNK
     Route: 065
     Dates: start: 20120131, end: 201401

REACTIONS (1)
  - Neoplasm malignant [Fatal]
